FAERS Safety Report 10572221 (Version 1)
Quarter: 2014Q4

REPORT INFORMATION
  Report Type: Spontaneous
  Country: US (occurrence: US)
  Receive Date: 20141108
  Receipt Date: 20141108
  Transmission Date: 20150529
  Serious: Yes (Hospitalization, Other)
  Sender: FDA-Public Use
  Company Number: US-009507513-1411USA002233

PATIENT
  Age: 56 Year
  Sex: Male

DRUGS (3)
  1. PROVENTIL [Suspect]
     Active Substance: ALBUTEROL
     Indication: CHRONIC OBSTRUCTIVE PULMONARY DISEASE
  2. PROVENTIL [Suspect]
     Active Substance: ALBUTEROL
     Indication: DYSPNOEA
  3. PROVENTIL [Suspect]
     Active Substance: ALBUTEROL
     Indication: ASTHMA
     Dosage: 90 MICROGRAM, AS NEEDED
     Route: 055

REACTIONS (4)
  - Dyspnoea [Unknown]
  - Underdose [Unknown]
  - Wrong technique in drug usage process [Unknown]
  - Prostate cancer [Recovered/Resolved]

NARRATIVE: CASE EVENT DATE: 201311
